FAERS Safety Report 6112163-0 (Version None)
Quarter: 2009Q1

REPORT INFORMATION
  Report Type: 
  Country: None (occurrence: None)
  Receive Date: 20090310
  Receipt Date: 20090228
  Transmission Date: 20090719
  Serious: Yes (Hospitalization)
  Sender: FDA-Public Use
  Company Number: CHPA2009US05899

PATIENT
  Age: 2 Year
  Sex: Female

DRUGS (1)
  1. TRIAMINIC DAY TIME       COLD + COUGH (DEXTROMETHORPHAN HYDROBROMIDE, [Suspect]
     Dosage: UNK UNK ORAL
     Route: 048
     Dates: start: 20090201, end: 20090201

REACTIONS (2)
  - CONVULSION [None]
  - INCORRECT DOSE ADMINISTERED [None]
